FAERS Safety Report 25397688 (Version 3)
Quarter: 2025Q2

REPORT INFORMATION
  Report Type: Spontaneous
  Country: DE (occurrence: DE)
  Receive Date: 20250604
  Receipt Date: 20250610
  Transmission Date: 20250716
  Serious: Yes (Life-Threatening, Hospitalization, Other)
  Sender: PFIZER
  Company Number: None

PATIENT
  Age: 68 Year
  Sex: Male
  Weight: 88 kg

DRUGS (4)
  1. METHOTREXATE SODIUM [Suspect]
     Active Substance: METHOTREXATE SODIUM
     Dosage: 20 MG, WEEKLY
     Route: 058
     Dates: end: 202410
  2. PREDNISOLONE [Concomitant]
     Active Substance: PREDNISOLONE
     Dosage: 5 MG, 1X/DAY (1-0-0-0)
  3. CHOLECALCIFEROL [Concomitant]
     Active Substance: CHOLECALCIFEROL
     Dosage: 20 IU, WEEKLY
  4. OXYCODONE [Concomitant]
     Active Substance: OXYCODONE
     Dosage: 5 MG, 1X/DAY (AT 18:00)

REACTIONS (7)
  - Hepatic cirrhosis [Recovered/Resolved with Sequelae]
  - Spontaneous bacterial peritonitis [Recovered/Resolved with Sequelae]
  - Hepatitis E [Recovered/Resolved with Sequelae]
  - Acute kidney injury [Unknown]
  - Hyperglycaemia [Unknown]
  - Drug-induced liver injury [Unknown]
  - Cholangitis [Unknown]

NARRATIVE: CASE EVENT DATE: 20240101
